FAERS Safety Report 19982557 (Version 1)
Quarter: 2021Q4

REPORT INFORMATION
  Report Type: Spontaneous
  Country: US (occurrence: US)
  Receive Date: 20211022
  Receipt Date: 20211022
  Transmission Date: 20220303
  Serious: No
  Sender: FDA-Public Use
  Company Number: US-PMX02-US-PMX02-21-00008

PATIENT
  Age: 66 Year
  Sex: Female

DRUGS (1)
  1. ARIDOL [Suspect]
     Active Substance: MANNITOL
     Indication: Pulmonary function challenge test
     Route: 055

REACTIONS (2)
  - Occupational exposure to product [Recovered/Resolved]
  - Headache [Recovered/Resolved]
